FAERS Safety Report 9473052 (Version 2)
Quarter: 2013Q3

REPORT INFORMATION
  Report Type: Spontaneous
  Country: US (occurrence: US)
  Receive Date: 20130823
  Receipt Date: 20130823
  Transmission Date: 20140515
  Serious: Yes (Hospitalization)
  Sender: FDA-Public Use
  Company Number: US-BRISTOL-MYERS SQUIBB COMPANY-17378720

PATIENT
  Sex: Male

DRUGS (1)
  1. SPRYCEL [Suspect]
     Dosage: DOSE INCREASED FROM 70 TO 140MG DAILY

REACTIONS (2)
  - Adverse event [Unknown]
  - Constipation [Not Recovered/Not Resolved]
